FAERS Safety Report 11291104 (Version 22)
Quarter: 2017Q3

REPORT INFORMATION
  Report Type: Report from Study
  Country: IL (occurrence: IL)
  Receive Date: 20150722
  Receipt Date: 20170802
  Transmission Date: 20171127
  Serious: Yes (Hospitalization)
  Sender: FDA-Public Use
  Company Number: PHHY2015IL036644

PATIENT
  Age: 41 Year
  Sex: Male
  Weight: 90 kg

DRUGS (2)
  1. TRAMADEX [Concomitant]
     Active Substance: TRAMADOL
     Indication: BACK PAIN
     Route: 065
     Dates: start: 2011
  2. TASIGNA [Suspect]
     Active Substance: NILOTINIB
     Indication: CHRONIC MYELOID LEUKAEMIA
     Dosage: 300 MG BID
     Route: 048
     Dates: start: 20150311, end: 20170724

REACTIONS (38)
  - Feeling abnormal [Not Recovered/Not Resolved]
  - Toothache [Recovering/Resolving]
  - Nausea [Not Recovered/Not Resolved]
  - Epistaxis [Recovered/Resolved]
  - Hypersomnia [Not Recovered/Not Resolved]
  - Pharyngeal paraesthesia [Not Recovered/Not Resolved]
  - Anorectal disorder [Unknown]
  - Dizziness [Recovering/Resolving]
  - Pruritus [Not Recovered/Not Resolved]
  - Dysphagia [Unknown]
  - Eye irritation [Not Recovered/Not Resolved]
  - Cytogenetic analysis abnormal [Not Recovered/Not Resolved]
  - Anal fissure [Recovered/Resolved]
  - Haemorrhoids [Not Recovered/Not Resolved]
  - Sleep disorder [Recovering/Resolving]
  - Limb injury [Recovering/Resolving]
  - Swelling [Not Recovered/Not Resolved]
  - Asthenia [Not Recovered/Not Resolved]
  - Constipation [Not Recovered/Not Resolved]
  - Pain [Unknown]
  - Wound [Not Recovered/Not Resolved]
  - Head injury [Not Recovered/Not Resolved]
  - Rash [Not Recovered/Not Resolved]
  - Vomiting [Not Recovered/Not Resolved]
  - Feeling cold [Not Recovered/Not Resolved]
  - Diarrhoea [Recovering/Resolving]
  - Mood altered [Not Recovered/Not Resolved]
  - Fall [Recovered/Resolved]
  - Oxygen saturation decreased [Unknown]
  - Fall [Recovering/Resolving]
  - Fatigue [Not Recovered/Not Resolved]
  - Depression [Not Recovered/Not Resolved]
  - Dysgeusia [Not Recovered/Not Resolved]
  - Ocular hyperaemia [Not Recovered/Not Resolved]
  - Dyspnoea [Not Recovered/Not Resolved]
  - Decreased appetite [Not Recovered/Not Resolved]
  - Food interaction [Unknown]
  - Syncope [Recovered/Resolved]

NARRATIVE: CASE EVENT DATE: 20160412
